FAERS Safety Report 5615489-X (Version None)
Quarter: 2008Q1

REPORT INFORMATION
  Report Type: 
  Country: None (occurrence: None)
  Receive Date: 20080131
  Receipt Date: 20080121
  Transmission Date: 20080703
  Serious: Yes (Death, Hospitalization, Other)
  Sender: FDA-Public Use
  Company Number: 2007-03860

PATIENT
  Age: 62 Year
  Sex: Male
  Weight: 83 kg

DRUGS (4)
  1. VELCADE [Suspect]
     Indication: MULTIPLE MYELOMA
     Dosage: 1.30 MG/M2
     Dates: start: 20070724, end: 20071113
  2. VALACYCLOVIR [Concomitant]
  3. SULFAMETHOXAZOLE AND TRIMETHOPRIM [Concomitant]
  4. PANTOPRAZOLE SODIUM [Concomitant]

REACTIONS (11)
  - ABDOMINAL PAIN [None]
  - AUTONOMIC NEUROPATHY [None]
  - CONSTIPATION [None]
  - DIARRHOEA [None]
  - MALIGNANT NEOPLASM PROGRESSION [None]
  - MULTI-ORGAN FAILURE [None]
  - MULTIPLE MYELOMA [None]
  - NERVOUS SYSTEM DISORDER [None]
  - RESPIRATORY FAILURE [None]
  - SHOCK [None]
  - VOCAL CORD PARALYSIS [None]
